FAERS Safety Report 17274327 (Version 1)
Quarter: 2020Q1

REPORT INFORMATION
  Report Type: Spontaneous
  Country: US (occurrence: US)
  Receive Date: 20200115
  Receipt Date: 20200115
  Transmission Date: 20200409
  Serious: Yes (Death, Hospitalization)
  Sender: FDA-Public Use
  Company Number: US-PFIZER INC-2020013795

PATIENT
  Age: 55 Year
  Sex: Female

DRUGS (6)
  1. GABAPENTIN. [Suspect]
     Active Substance: GABAPENTIN
     Dosage: UNK, (INGESTION)
     Route: 048
  2. AMPHETAMINE [Suspect]
     Active Substance: AMPHETAMINE
     Dosage: UNK, (INHALATION/NASAL)
     Route: 045
  3. AMPHETAMINE [Suspect]
     Active Substance: AMPHETAMINE
     Dosage: UNK, (INGESTION)
     Route: 048
  4. GABAPENTIN. [Suspect]
     Active Substance: GABAPENTIN
     Dosage: UNK, (INHALATION/NASAL)
     Route: 045
  5. ALPRAZOLAM. [Suspect]
     Active Substance: ALPRAZOLAM
     Dosage: UNK, (INGESTION)
     Route: 048
  6. ALPRAZOLAM. [Suspect]
     Active Substance: ALPRAZOLAM
     Dosage: UNK, (INHALATION/NASAL)
     Route: 045

REACTIONS (1)
  - Completed suicide [Fatal]

NARRATIVE: CASE EVENT DATE: 2018
